FAERS Safety Report 6888376-7 (Version None)
Quarter: 2010Q3

REPORT INFORMATION
  Report Type: 
  Country: None (occurrence: None)
  Receive Date: 20100730
  Receipt Date: 20100727
  Transmission Date: 20110219
  Serious: Yes (Other)
  Sender: FDA-Public Use
  Company Number: US-GILEAD-2010-0030669

PATIENT
  Sex: Female
  Weight: 53.118 kg

DRUGS (30)
  1. LETAIRIS [Suspect]
     Indication: PULMONARY ARTERIAL HYPERTENSION
     Route: 048
     Dates: start: 20081006
  2. REVATIO [Concomitant]
     Dates: start: 20080319
  3. CELLCEPT [Concomitant]
  4. GAVISCON [Concomitant]
  5. NORCO [Concomitant]
  6. CRESTOR [Concomitant]
  7. PREVACID [Concomitant]
  8. FUROSEMIDE [Concomitant]
  9. SLOW FE [Concomitant]
  10. KLOR-CON [Concomitant]
  11. XYZAL [Concomitant]
  12. VIVELLE [Concomitant]
  13. BONIVA [Concomitant]
  14. CENTRUM SILVER [Concomitant]
  15. SINGULAIR [Concomitant]
  16. COZAAR [Concomitant]
  17. ZOLOFT [Concomitant]
  18. METHOTREXATE [Concomitant]
  19. PREDNISONE [Concomitant]
  20. SYNTHROID [Concomitant]
  21. CLARINEX [Concomitant]
  22. FOLIC ACID [Concomitant]
  23. FOLTX [Concomitant]
  24. CALCIUM [Concomitant]
  25. GLUCOSAMINE [Concomitant]
  26. SUPER B-50 COMPLEX [Concomitant]
  27. ASPIRIN [Concomitant]
  28. ZETIA [Concomitant]
  29. VITAMIN D [Concomitant]
  30. TRIGLIDE [Concomitant]

REACTIONS (2)
  - LIVER FUNCTION TEST ABNORMAL [None]
  - UNEVALUABLE INVESTIGATION [None]
